FAERS Safety Report 5305770-6 (Version None)
Quarter: 2007Q2

REPORT INFORMATION
  Report Type: 
  Country: None (occurrence: None)
  Receive Date: 20070424
  Receipt Date: 20070416
  Transmission Date: 20071010
  Serious: Yes (Life-Threatening, Other)
  Sender: FDA-Public Use
  Company Number: JP-ELI_LILLY_AND_COMPANY-JP200704000710

PATIENT
  Age: 21 Year
  Sex: Female
  Weight: 35 kg

DRUGS (8)
  1. ZYPREXA [Suspect]
     Indication: SCHIZOPHRENIA
     Dosage: 10 MG, DAILY (1/D)
     Route: 048
     Dates: start: 20070329, end: 20070329
  2. HALOPERIDOL [Concomitant]
     Indication: SCHIZOPHRENIA
     Dosage: 0.75 MG, DAILY (1/D)
     Route: 048
     Dates: start: 20070329, end: 20070329
  3. CONTOMIN [Concomitant]
     Indication: SCHIZOPHRENIA
     Dosage: 25 MG, UNK
     Route: 048
     Dates: start: 20070329, end: 20070329
  4. ANAFRANIL [Concomitant]
     Indication: DEPRESSION
     Dosage: 50 MG, DAILY (1/D)
     Route: 048
     Dates: start: 20070329, end: 20070329
  5. MUCOSTA [Concomitant]
     Indication: GASTRITIS PROPHYLAXIS
     Dosage: 100 MG, DAILY (1/D)
     Route: 048
     Dates: start: 20070329, end: 20070329
  6. MARZULENE S [Concomitant]
     Indication: GASTRITIS PROPHYLAXIS
     Dosage: 0.67 G, DAILY (1/D)
     Route: 048
     Dates: start: 20070329, end: 20070329
  7. SSRI [Concomitant]
     Dosage: UNK, UNK
     Route: 065
     Dates: start: 20060206, end: 20070301
  8. TOLEDOMIN [Concomitant]
     Dosage: 100 MG, DAILY (1/D)
     Route: 048
     Dates: start: 20060206, end: 20070301

REACTIONS (2)
  - DIABETIC HYPERGLYCAEMIC COMA [None]
  - SHOCK [None]
